FAERS Safety Report 12205736 (Version 1)
Quarter: 2016Q1

REPORT INFORMATION
  Report Type: Spontaneous
  Country: US (occurrence: US)
  Receive Date: 20160323
  Receipt Date: 20160323
  Transmission Date: 20160526
  Serious: Yes (Hospitalization)
  Sender: FDA-Public Use
  Company Number: US-MYLANLABS-2016M1012564

PATIENT

DRUGS (9)
  1. HYDROXYZINE [Suspect]
     Active Substance: HYDROXYZINE\HYDROXYZINE HYDROCHLORIDE
     Indication: PRODUCT USED FOR UNKNOWN INDICATION
     Route: 064
  2. ADEMETIONINE [Suspect]
     Active Substance: ADEMETIONINE
     Route: 064
  3. BETAMETHASONE. [Suspect]
     Active Substance: BETAMETHASONE
     Indication: PRODUCT USED FOR UNKNOWN INDICATION
     Route: 064
  4. URSODEOXYCHOLIC ACID [Suspect]
     Active Substance: URSODIOL
     Indication: PRODUCT USED FOR UNKNOWN INDICATION
     Route: 064
  5. MAGNESIUM SULFATE. [Suspect]
     Active Substance: MAGNESIUM SULFATE
     Indication: PRODUCT USED FOR UNKNOWN INDICATION
     Route: 064
  6. COLESTYRAMINE [Suspect]
     Active Substance: CHOLESTYRAMINE
     Dosage: 4 G DAILY
     Route: 064
  7. DIPHENHYDRAMINE. [Suspect]
     Active Substance: DIPHENHYDRAMINE
     Indication: PRODUCT USED FOR UNKNOWN INDICATION
     Route: 064
  8. COLESTYRAMINE [Suspect]
     Active Substance: CHOLESTYRAMINE
     Dosage: 16 G DAILY
     Route: 065
  9. URSODEOXYCHOLIC ACID [Suspect]
     Active Substance: URSODIOL
     Dosage: 500 MG, BID
     Route: 064

REACTIONS (3)
  - Foetal exposure during pregnancy [Recovered/Resolved]
  - Premature baby [Unknown]
  - Neonatal respiratory distress syndrome [Unknown]
